FAERS Safety Report 16594608 (Version 1)
Quarter: 2019Q3

REPORT INFORMATION
  Report Type: Spontaneous
  Country: CN (occurrence: CN)
  Receive Date: 20190718
  Receipt Date: 20190718
  Transmission Date: 20191004
  Serious: Yes (Hospitalization)
  Sender: FDA-Public Use
  Company Number: CN-SA-2019SA192941

PATIENT
  Age: 53 Year
  Sex: Male
  Weight: 56.5 kg

DRUGS (3)
  1. LANTUS [Suspect]
     Active Substance: INSULIN GLARGINE
     Indication: TYPE 2 DIABETES MELLITUS
     Dosage: 10 U, QD
     Route: 058
     Dates: start: 20190621, end: 20190623
  2. LANTUS [Suspect]
     Active Substance: INSULIN GLARGINE
     Dosage: 7 U, HS
     Route: 058
     Dates: start: 20190624, end: 20190626
  3. PROGESTERONE. [Concomitant]
     Active Substance: PROGESTERONE
     Indication: PYELONEPHRITIS
     Dosage: 20 MG, QD
     Route: 030
     Dates: start: 20190621, end: 20190625

REACTIONS (3)
  - Asthenia [Recovered/Resolved]
  - Cold sweat [Recovered/Resolved]
  - Hypoglycaemia [Recovered/Resolved]

NARRATIVE: CASE EVENT DATE: 20190623
